FAERS Safety Report 19447475 (Version 1)
Quarter: 2021Q2

REPORT INFORMATION
  Report Type: Spontaneous
  Country: US (occurrence: US)
  Receive Date: 20210621
  Receipt Date: 20210621
  Transmission Date: 20210717
  Serious: Yes (Hospitalization, Other)
  Sender: FDA-Public Use
  Company Number: None

PATIENT
  Age: 76 Year
  Sex: Female
  Weight: 58.05 kg

DRUGS (11)
  1. OMEPRAZOLE. [Concomitant]
     Active Substance: OMEPRAZOLE
  2. CHOLESTOFF [Concomitant]
  3. METAMUCIL [Concomitant]
     Active Substance: PLANTAGO SEED
  4. BENAZEPRIL [Suspect]
     Active Substance: BENAZEPRIL HYDROCHLORIDE
     Indication: HYPERTENSION
     Dosage: ?          QUANTITY:1 TABLET(S);?
     Route: 048
  5. VITAMIN D3 [Concomitant]
     Active Substance: CHOLECALCIFEROL
  6. VITAMIN C WITH ROSE HIPS [Concomitant]
  7. MOTRIN [Concomitant]
     Active Substance: IBUPROFEN
  8. NASACORT [Concomitant]
     Active Substance: TRIAMCINOLONE ACETONIDE
  9. LORATADINE. [Concomitant]
     Active Substance: LORATADINE
  10. TROSPIUM [Concomitant]
     Active Substance: TROSPIUM
  11. CENTRUM SILVER [Concomitant]
     Active Substance: MINERALS\VITAMINS

REACTIONS (2)
  - Food allergy [None]
  - Angioedema [None]

NARRATIVE: CASE EVENT DATE: 20210606
